FAERS Safety Report 18223808 (Version 1)
Quarter: 2020Q3

REPORT INFORMATION
  Report Type: Spontaneous
  Country: ES (occurrence: ES)
  Receive Date: 20200902
  Receipt Date: 20200902
  Transmission Date: 20201103
  Serious: Yes (Other)
  Sender: FDA-Public Use
  Company Number: ES-PFIZER INC-2020336653

PATIENT
  Age: 3 Year
  Sex: Male
  Weight: 14.8 kg

DRUGS (3)
  1. RITUXIMAB. [Concomitant]
     Active Substance: RITUXIMAB
     Indication: LEUKAEMIA
     Dosage: UNK
     Route: 042
     Dates: start: 20200717, end: 20200717
  2. CYTARABINE. [Suspect]
     Active Substance: CYTARABINE
     Indication: LEUKAEMIA
     Dosage: 32 MG, 1X/DAY
     Route: 042
     Dates: start: 20200717, end: 20200721
  3. ETOPOSIDE. [Suspect]
     Active Substance: ETOPOSIDE
     Indication: LEUKAEMIA
     Dosage: UNK
     Route: 042
     Dates: start: 20200718, end: 20200721

REACTIONS (3)
  - Erythema [Recovered/Resolved]
  - Rash maculo-papular [Recovered/Resolved]
  - Pyrexia [Recovered/Resolved]

NARRATIVE: CASE EVENT DATE: 20200721
